FAERS Safety Report 10955956 (Version 2)
Quarter: 2015Q2

REPORT INFORMATION
  Report Type: Spontaneous
  Country: US (occurrence: US)
  Receive Date: 20150326
  Receipt Date: 20150526
  Transmission Date: 20150821
  Serious: No
  Sender: FDA-Public Use
  Company Number: US-JNJFOC-20130710227

PATIENT

DRUGS (4)
  1. RALTEGRAVIR [Interacting]
     Active Substance: RALTEGRAVIR
     Indication: HIV INFECTION
     Dosage: PERIOD 1
     Route: 048
  2. ETRAVIRINE [Suspect]
     Active Substance: ETRAVIRINE
     Indication: HIV INFECTION
     Dosage: PERIOD 2
     Route: 048
  3. RALTEGRAVIR [Interacting]
     Active Substance: RALTEGRAVIR
     Indication: HIV INFECTION
     Dosage: PERIOD 3
     Route: 048
  4. ETRAVIRINE [Suspect]
     Active Substance: ETRAVIRINE
     Indication: HIV INFECTION
     Dosage: PERIOD 2
     Route: 048

REACTIONS (5)
  - Vaginal haemorrhage [Unknown]
  - Headache [Unknown]
  - Rash [Unknown]
  - Somnolence [Unknown]
  - Drug interaction [Unknown]
